FAERS Safety Report 13131874 (Version 3)
Quarter: 2017Q1

REPORT INFORMATION
  Report Type: Spontaneous
  Country: US (occurrence: US)
  Receive Date: 20170119
  Receipt Date: 20170301
  Transmission Date: 20170428
  Serious: Yes (Death)
  Sender: FDA-Public Use
  Company Number: US-ACTELION-A-US2017-148130

PATIENT
  Age: 71 Year
  Sex: Male
  Weight: 64.4 kg

DRUGS (5)
  1. UPTRAVI [Suspect]
     Active Substance: SELEXIPAG
     Indication: PULMONARY HYPERTENSION
     Dosage: 1600 UNK, UNK
     Route: 048
  2. UPTRAVI [Suspect]
     Active Substance: SELEXIPAG
     Dosage: 1400 MCG, BID
     Route: 048
     Dates: start: 20161123
  3. TYVASO [Suspect]
     Active Substance: TREPROSTINIL
     Indication: PULMONARY HYPERTENSION
     Dosage: 18-54 MCG, QID
     Route: 055
     Dates: start: 20121206, end: 2017
  4. LETAIRIS [Concomitant]
     Active Substance: AMBRISENTAN
  5. ADCIRCA [Concomitant]
     Active Substance: TADALAFIL

REACTIONS (15)
  - Pain [Unknown]
  - Death [Fatal]
  - Memory impairment [Unknown]
  - Self-injurious ideation [Unknown]
  - Headache [Unknown]
  - Hostility [Unknown]
  - Violence-related symptom [Unknown]
  - Pain in extremity [Unknown]
  - Depressed mood [Unknown]
  - Crying [Unknown]
  - Neck pain [Unknown]
  - Nausea [Unknown]
  - Mood swings [Unknown]
  - Affect lability [Unknown]
  - Abnormal behaviour [Unknown]

NARRATIVE: CASE EVENT DATE: 201612
